FAERS Safety Report 15968437 (Version 2)
Quarter: 2021Q3

REPORT INFORMATION
  Report Type: Report from Study
  Country: JP (occurrence: JP)
  Receive Date: 20190215
  Receipt Date: 20210825
  Transmission Date: 20211014
  Serious: Yes (Death, Hospitalization, Other)
  Sender: FDA-Public Use
  Company Number: JP-BAUSCH-BL-2015-018865

PATIENT
  Age: 32 Year
  Sex: Female
  Weight: 34 kg

DRUGS (245)
  1. INTRALIPOS [Concomitant]
     Active Substance: SOYBEAN OIL
     Route: 065
     Dates: start: 20161024
  2. INTRALIPOS [Concomitant]
     Active Substance: SOYBEAN OIL
     Route: 065
     Dates: start: 20161207
  3. INTRALIPOS [Concomitant]
     Active Substance: SOYBEAN OIL
     Route: 065
     Dates: start: 20161212
  4. INTRALIPOS [Concomitant]
     Active Substance: SOYBEAN OIL
     Route: 065
     Dates: start: 20161223
  5. INTRALIPOS [Concomitant]
     Active Substance: SOYBEAN OIL
     Route: 065
     Dates: start: 20170106
  6. INTRALIPOS [Concomitant]
     Active Substance: SOYBEAN OIL
     Route: 065
     Dates: start: 20170109
  7. INTRALIPOS [Concomitant]
     Active Substance: SOYBEAN OIL
     Route: 065
     Dates: start: 20170111
  8. INTRALIPOS [Concomitant]
     Active Substance: SOYBEAN OIL
     Route: 065
     Dates: start: 20170116
  9. SEISHOKU [Concomitant]
     Active Substance: SODIUM CHLORIDE
     Route: 065
     Dates: start: 20161209, end: 20161218
  10. SEISHOKU [Concomitant]
     Active Substance: SODIUM CHLORIDE
     Route: 065
     Dates: start: 20170110, end: 20170115
  11. INFLUENZA VACCINE [Concomitant]
     Active Substance: INFLUENZA VIRUS VACCINE
     Indication: PRODUCT USED FOR UNKNOWN INDICATION
     Route: 065
     Dates: start: 20161117
  12. SERENACE [Concomitant]
     Active Substance: HALOPERIDOL
     Dosage: DOSE INCREASED
     Route: 050
     Dates: start: 20141119
  13. DAIKENCHUTO [Concomitant]
     Active Substance: HERBALS
     Indication: PRODUCT USED FOR UNKNOWN INDICATION
     Route: 050
     Dates: start: 20141113, end: 20161019
  14. HIRNAMIN [Concomitant]
     Active Substance: LEVOMEPROMAZINE
     Dosage: AS NECESSARY
     Route: 050
     Dates: start: 20160625
  15. HORIZON [Concomitant]
     Active Substance: DIAZEPAM
     Route: 065
     Dates: start: 20160929
  16. LACTEC?G [Concomitant]
     Indication: PRODUCT USED FOR UNKNOWN INDICATION
     Route: 065
     Dates: start: 20160729, end: 20160802
  17. PLEVITA [Concomitant]
     Route: 065
     Dates: start: 20160817, end: 20160819
  18. PENLEIV [Concomitant]
     Route: 065
     Dates: start: 20160831, end: 20160907
  19. PENLEIV [Concomitant]
     Route: 065
     Dates: start: 20161206, end: 20161212
  20. FULCALIQ [Concomitant]
     Active Substance: AMINO ACIDS\CARBOHYDRATES\ELECTROLYTES NOS\VITAMINS
     Route: 065
     Dates: start: 20170214, end: 20170215
  21. SOLDEM 3 [Concomitant]
     Indication: NUTRITIONAL SUPPLEMENTATION
     Route: 065
     Dates: start: 20160820, end: 20160823
  22. MEDLENIK [Concomitant]
     Active Substance: CUPRIC SULFATE\FERRIC CHLORIDE\MANGANESE CHLORIDE\POTASSIUM IODIDE\ZINC SULFATE
     Route: 065
     Dates: start: 20161018, end: 20161024
  23. MEDLENIK [Concomitant]
     Active Substance: CUPRIC SULFATE\FERRIC CHLORIDE\MANGANESE CHLORIDE\POTASSIUM IODIDE\ZINC SULFATE
     Route: 065
     Dates: start: 20161213, end: 20161219
  24. MEDLENIK [Concomitant]
     Active Substance: CUPRIC SULFATE\FERRIC CHLORIDE\MANGANESE CHLORIDE\POTASSIUM IODIDE\ZINC SULFATE
     Route: 065
     Dates: start: 20170131, end: 20170206
  25. INTRALIPOS [Concomitant]
     Active Substance: SOYBEAN OIL
     Route: 065
     Dates: start: 20160901
  26. INTRALIPOS [Concomitant]
     Active Substance: SOYBEAN OIL
     Route: 065
     Dates: start: 20160909
  27. INTRALIPOS [Concomitant]
     Active Substance: SOYBEAN OIL
     Route: 065
     Dates: start: 20160916
  28. INTRALIPOS [Concomitant]
     Active Substance: SOYBEAN OIL
     Route: 065
     Dates: start: 20161014
  29. INTRALIPOS [Concomitant]
     Active Substance: SOYBEAN OIL
     Route: 065
     Dates: start: 20161109
  30. INTRALIPOS [Concomitant]
     Active Substance: SOYBEAN OIL
     Route: 065
     Dates: start: 20161116
  31. INTRALIPOS [Concomitant]
     Active Substance: SOYBEAN OIL
     Route: 065
     Dates: start: 20161221
  32. INTRALIPOS [Concomitant]
     Active Substance: SOYBEAN OIL
     Route: 065
     Dates: start: 20161226
  33. INTRALIPOS [Concomitant]
     Active Substance: SOYBEAN OIL
     Route: 065
     Dates: start: 20170113
  34. FULCALIQ [Concomitant]
     Active Substance: AMINO ACIDS\CARBOHYDRATES\ELECTROLYTES NOS\VITAMINS
     Route: 065
     Dates: start: 20161108, end: 20161114
  35. FULCALIQ [Concomitant]
     Active Substance: AMINO ACIDS\CARBOHYDRATES\ELECTROLYTES NOS\VITAMINS
     Route: 065
     Dates: start: 20161122, end: 20161128
  36. FULCALIQ [Concomitant]
     Active Substance: AMINO ACIDS\CARBOHYDRATES\ELECTROLYTES NOS\VITAMINS
     Route: 065
     Dates: start: 20161206, end: 20161212
  37. FULCALIQ [Concomitant]
     Active Substance: AMINO ACIDS\CARBOHYDRATES\ELECTROLYTES NOS\VITAMINS
     Route: 065
     Dates: start: 20170207, end: 20170213
  38. FULCALIQ [Concomitant]
     Active Substance: AMINO ACIDS\CARBOHYDRATES\ELECTROLYTES NOS\VITAMINS
     Route: 065
     Dates: start: 20170221, end: 20170227
  39. SEISHOKU [Concomitant]
     Active Substance: SODIUM CHLORIDE
     Indication: PRODUCT USED FOR UNKNOWN INDICATION
     Route: 065
     Dates: start: 20160921
  40. SEISHOKU [Concomitant]
     Active Substance: SODIUM CHLORIDE
     Route: 065
     Dates: start: 20160928
  41. SEISHOKU [Concomitant]
     Active Substance: SODIUM CHLORIDE
     Route: 065
     Dates: start: 20170103, end: 20170109
  42. SEISHOKU [Concomitant]
     Active Substance: SODIUM CHLORIDE
     Route: 065
     Dates: start: 20170116, end: 20170119
  43. PANTETHINE [Concomitant]
     Active Substance: PANTETHINE
     Route: 065
     Dates: start: 20161227, end: 20170102
  44. PANTETHINE [Concomitant]
     Active Substance: PANTETHINE
     Route: 065
     Dates: start: 20170103, end: 20170109
  45. PANTETHINE [Concomitant]
     Active Substance: PANTETHINE
     Route: 065
     Dates: start: 20170124, end: 20170130
  46. CHOREAZINE TABLETS 12.5MG [Suspect]
     Active Substance: TETRABENAZINE
     Route: 048
     Dates: start: 20130802, end: 20141113
  47. BIO?THREE [Concomitant]
     Active Substance: HERBALS
     Indication: PRODUCT USED FOR UNKNOWN INDICATION
     Route: 050
     Dates: start: 20141119, end: 20161027
  48. HORIZON [Concomitant]
     Active Substance: DIAZEPAM
     Route: 065
     Dates: start: 20160928
  49. PENLEIV [Concomitant]
     Route: 065
     Dates: start: 20160908, end: 20160912
  50. PENLEIV [Concomitant]
     Route: 065
     Dates: start: 20170124, end: 20170130
  51. FULCALIQ [Concomitant]
     Active Substance: AMINO ACIDS\CARBOHYDRATES\ELECTROLYTES NOS\VITAMINS
     Route: 065
     Dates: start: 20160924, end: 20161011
  52. FULCALIQ [Concomitant]
     Active Substance: AMINO ACIDS\CARBOHYDRATES\ELECTROLYTES NOS\VITAMINS
     Route: 065
     Dates: start: 20161129, end: 20161205
  53. FULCALIQ [Concomitant]
     Active Substance: AMINO ACIDS\CARBOHYDRATES\ELECTROLYTES NOS\VITAMINS
     Route: 065
     Dates: start: 20170116, end: 20170119
  54. SOLDEM 3 [Concomitant]
     Route: 065
     Dates: start: 20160913, end: 20160916
  55. MEDLENIK [Concomitant]
     Active Substance: CUPRIC SULFATE\FERRIC CHLORIDE\MANGANESE CHLORIDE\POTASSIUM IODIDE\ZINC SULFATE
     Route: 065
     Dates: start: 20160824, end: 20160830
  56. MEDLENIK [Concomitant]
     Active Substance: CUPRIC SULFATE\FERRIC CHLORIDE\MANGANESE CHLORIDE\POTASSIUM IODIDE\ZINC SULFATE
     Route: 065
     Dates: start: 20160831, end: 20160907
  57. MEDLENIK [Concomitant]
     Active Substance: CUPRIC SULFATE\FERRIC CHLORIDE\MANGANESE CHLORIDE\POTASSIUM IODIDE\ZINC SULFATE
     Route: 065
     Dates: start: 20161025, end: 20161031
  58. MEDLENIK [Concomitant]
     Active Substance: CUPRIC SULFATE\FERRIC CHLORIDE\MANGANESE CHLORIDE\POTASSIUM IODIDE\ZINC SULFATE
     Route: 065
     Dates: start: 20170103, end: 20170109
  59. MEDLENIK [Concomitant]
     Active Substance: CUPRIC SULFATE\FERRIC CHLORIDE\MANGANESE CHLORIDE\POTASSIUM IODIDE\ZINC SULFATE
     Route: 065
     Dates: start: 20170221, end: 20170227
  60. INTRALIPOS [Concomitant]
     Active Substance: SOYBEAN OIL
     Route: 065
     Dates: start: 20160905
  61. INTRALIPOS [Concomitant]
     Active Substance: SOYBEAN OIL
     Route: 065
     Dates: start: 20161010
  62. INTRALIPOS [Concomitant]
     Active Substance: SOYBEAN OIL
     Route: 065
     Dates: start: 20161102
  63. INTRALIPOS [Concomitant]
     Active Substance: SOYBEAN OIL
     Route: 065
     Dates: start: 20161219
  64. INTRALIPOS [Concomitant]
     Active Substance: SOYBEAN OIL
     Route: 065
     Dates: start: 20170125
  65. INTRALIPOS [Concomitant]
     Active Substance: SOYBEAN OIL
     Route: 065
     Dates: start: 20170201
  66. INTRALIPOS [Concomitant]
     Active Substance: SOYBEAN OIL
     Route: 065
     Dates: start: 20170217
  67. INTRALIPOS [Concomitant]
     Active Substance: SOYBEAN OIL
     Route: 065
     Dates: start: 20170220
  68. FULCALIQ [Concomitant]
     Active Substance: AMINO ACIDS\CARBOHYDRATES\ELECTROLYTES NOS\VITAMINS
     Route: 065
     Dates: start: 20170103, end: 20170109
  69. SEISHOKU [Concomitant]
     Active Substance: SODIUM CHLORIDE
     Route: 065
     Dates: start: 20170214, end: 20170216
  70. CHOREAZINE TABLETS 12.5MG [Suspect]
     Active Substance: TETRABENAZINE
     Route: 048
     Dates: start: 20141119, end: 20160721
  71. CEFMETAZOLE SODIUM [Suspect]
     Active Substance: CEFMETAZOLE SODIUM
     Route: 065
     Dates: start: 20161004, end: 20161008
  72. SEROQUEL [Concomitant]
     Active Substance: QUETIAPINE FUMARATE
     Indication: PRODUCT USED FOR UNKNOWN INDICATION
     Route: 050
     Dates: start: 20141113
  73. HORIZON [Concomitant]
     Active Substance: DIAZEPAM
     Route: 065
     Dates: start: 20160921
  74. PHYSIO 35 [Concomitant]
     Active Substance: ELECTROLYTES NOS
     Route: 065
     Dates: start: 20160812, end: 20160817
  75. PLEVITA [Concomitant]
     Indication: PRODUCT USED FOR UNKNOWN INDICATION
     Route: 065
     Dates: start: 20160806, end: 20160809
  76. PENLEIV [Concomitant]
     Route: 065
     Dates: start: 20161220, end: 20161226
  77. FULCALIQ [Concomitant]
     Active Substance: AMINO ACIDS\CARBOHYDRATES\ELECTROLYTES NOS\VITAMINS
     Indication: NUTRITIONAL SUPPLEMENTATION
     Route: 065
     Dates: start: 20160820, end: 20160823
  78. FULCALIQ [Concomitant]
     Active Substance: AMINO ACIDS\CARBOHYDRATES\ELECTROLYTES NOS\VITAMINS
     Route: 065
     Dates: start: 20160824, end: 20160830
  79. FULCALIQ [Concomitant]
     Active Substance: AMINO ACIDS\CARBOHYDRATES\ELECTROLYTES NOS\VITAMINS
     Route: 065
     Dates: start: 20161101, end: 20161107
  80. MEDLENIK [Concomitant]
     Active Substance: CUPRIC SULFATE\FERRIC CHLORIDE\MANGANESE CHLORIDE\POTASSIUM IODIDE\ZINC SULFATE
     Route: 065
     Dates: start: 20161108, end: 20161114
  81. MEDLENIK [Concomitant]
     Active Substance: CUPRIC SULFATE\FERRIC CHLORIDE\MANGANESE CHLORIDE\POTASSIUM IODIDE\ZINC SULFATE
     Route: 065
     Dates: start: 20161220, end: 20161226
  82. MEDLENIK [Concomitant]
     Active Substance: CUPRIC SULFATE\FERRIC CHLORIDE\MANGANESE CHLORIDE\POTASSIUM IODIDE\ZINC SULFATE
     Route: 065
     Dates: start: 20170207, end: 20170213
  83. MEDLENIK [Concomitant]
     Active Substance: CUPRIC SULFATE\FERRIC CHLORIDE\MANGANESE CHLORIDE\POTASSIUM IODIDE\ZINC SULFATE
     Route: 065
     Dates: start: 20170214, end: 20170215
  84. INTRALIPOS [Concomitant]
     Active Substance: SOYBEAN OIL
     Route: 065
     Dates: start: 20160926
  85. INTRALIPOS [Concomitant]
     Active Substance: SOYBEAN OIL
     Route: 065
     Dates: start: 20160928
  86. INTRALIPOS [Concomitant]
     Active Substance: SOYBEAN OIL
     Route: 065
     Dates: start: 20161031
  87. INTRALIPOS [Concomitant]
     Active Substance: SOYBEAN OIL
     Route: 065
     Dates: start: 20161114
  88. INTRALIPOS [Concomitant]
     Active Substance: SOYBEAN OIL
     Route: 065
     Dates: start: 20170102
  89. INTRALIPOS [Concomitant]
     Active Substance: SOYBEAN OIL
     Route: 065
     Dates: start: 20170118
  90. INTRALIPOS [Concomitant]
     Active Substance: SOYBEAN OIL
     Route: 065
     Dates: start: 20170123
  91. SEISHOKU [Concomitant]
     Active Substance: SODIUM CHLORIDE
     Route: 065
     Dates: start: 20160929
  92. SEISHOKU [Concomitant]
     Active Substance: SODIUM CHLORIDE
     Route: 065
     Dates: start: 20170105
  93. SEISHOKU [Concomitant]
     Active Substance: SODIUM CHLORIDE
     Route: 065
     Dates: start: 20170120, end: 20170123
  94. SEISHOKU [Concomitant]
     Active Substance: SODIUM CHLORIDE
     Route: 065
     Dates: start: 20170220
  95. SEISHOKU [Concomitant]
     Active Substance: SODIUM CHLORIDE
     Route: 065
     Dates: start: 20170221, end: 20170227
  96. PANTETHINE [Concomitant]
     Active Substance: PANTETHINE
     Route: 065
     Dates: start: 20170116, end: 20170119
  97. PANTETHINE [Concomitant]
     Active Substance: PANTETHINE
     Route: 065
     Dates: start: 20170217, end: 20170220
  98. CHOREAZINE TABLETS 12.5MG [Suspect]
     Active Substance: TETRABENAZINE
     Indication: HUNTINGTON^S DISEASE
     Route: 048
     Dates: start: 20130524, end: 20130530
  99. CHOREAZINE TABLETS 12.5MG [Suspect]
     Active Substance: TETRABENAZINE
     Route: 048
     Dates: start: 20130705, end: 20130717
  100. RIVOTRIL [Concomitant]
     Active Substance: CLONAZEPAM
     Indication: PRODUCT USED FOR UNKNOWN INDICATION
     Route: 048
     Dates: start: 20120316, end: 20141113
  101. SERENACE [Concomitant]
     Active Substance: HALOPERIDOL
     Indication: PRODUCT USED FOR UNKNOWN INDICATION
     Route: 048
     Dates: start: 20130308, end: 20141113
  102. LANSOPRAZOLE?OD [Concomitant]
     Active Substance: LANSOPRAZOLE
     Indication: PRODUCT USED FOR UNKNOWN INDICATION
     Route: 050
     Dates: start: 20141113
  103. GASCON [Concomitant]
     Active Substance: DIMETHICONE
     Indication: PRODUCT USED FOR UNKNOWN INDICATION
     Route: 050
     Dates: start: 20141113
  104. DAIKENCHUTO [Concomitant]
     Active Substance: HERBALS
     Route: 050
     Dates: start: 20161019, end: 20161124
  105. BIO?THREE [Concomitant]
     Active Substance: HERBALS
     Route: 050
     Dates: start: 20161027, end: 20161103
  106. HIRNAMIN [Concomitant]
     Active Substance: LEVOMEPROMAZINE
     Dosage: AS NECESSARY
     Route: 050
     Dates: start: 20160622
  107. PENLEIV [Concomitant]
     Route: 065
     Dates: start: 20161025, end: 20161031
  108. PENLEIV [Concomitant]
     Route: 065
     Dates: start: 20161108, end: 20161114
  109. PENLEIV [Concomitant]
     Route: 065
     Dates: start: 20170103, end: 20170109
  110. MEDLENIK [Concomitant]
     Active Substance: CUPRIC SULFATE\FERRIC CHLORIDE\MANGANESE CHLORIDE\POTASSIUM IODIDE\ZINC SULFATE
     Indication: NUTRITIONAL SUPPLEMENTATION
     Route: 065
     Dates: start: 20160820, end: 20160823
  111. MEDLENIK [Concomitant]
     Active Substance: CUPRIC SULFATE\FERRIC CHLORIDE\MANGANESE CHLORIDE\POTASSIUM IODIDE\ZINC SULFATE
     Route: 065
     Dates: start: 20160924, end: 20161011
  112. MEDLENIK [Concomitant]
     Active Substance: CUPRIC SULFATE\FERRIC CHLORIDE\MANGANESE CHLORIDE\POTASSIUM IODIDE\ZINC SULFATE
     Route: 065
     Dates: start: 20161012, end: 20161017
  113. MEDLENIK [Concomitant]
     Active Substance: CUPRIC SULFATE\FERRIC CHLORIDE\MANGANESE CHLORIDE\POTASSIUM IODIDE\ZINC SULFATE
     Route: 065
     Dates: start: 20161129, end: 20161205
  114. MEDLENIK [Concomitant]
     Active Substance: CUPRIC SULFATE\FERRIC CHLORIDE\MANGANESE CHLORIDE\POTASSIUM IODIDE\ZINC SULFATE
     Route: 065
     Dates: start: 20170116, end: 20170119
  115. MEDLENIK [Concomitant]
     Active Substance: CUPRIC SULFATE\FERRIC CHLORIDE\MANGANESE CHLORIDE\POTASSIUM IODIDE\ZINC SULFATE
     Route: 065
     Dates: start: 20170120, end: 20170123
  116. INTRALIPOS [Concomitant]
     Active Substance: SOYBEAN OIL
     Route: 065
     Dates: start: 20161005
  117. INTRALIPOS [Concomitant]
     Active Substance: SOYBEAN OIL
     Route: 065
     Dates: start: 20161028
  118. INTRALIPOS [Concomitant]
     Active Substance: SOYBEAN OIL
     Route: 065
     Dates: start: 20161107
  119. INTRALIPOS [Concomitant]
     Active Substance: SOYBEAN OIL
     Route: 065
     Dates: start: 20161125
  120. INTRALIPOS [Concomitant]
     Active Substance: SOYBEAN OIL
     Route: 065
     Dates: start: 20161130
  121. INTRALIPOS [Concomitant]
     Active Substance: SOYBEAN OIL
     Route: 065
     Dates: start: 20161205
  122. INTRALIPOS [Concomitant]
     Active Substance: SOYBEAN OIL
     Route: 065
     Dates: start: 20161230
  123. INTRALIPOS [Concomitant]
     Active Substance: SOYBEAN OIL
     Route: 065
     Dates: start: 20170120
  124. INTRALIPOS [Concomitant]
     Active Substance: SOYBEAN OIL
     Route: 065
     Dates: start: 20170208
  125. INTRALIPOS [Concomitant]
     Active Substance: SOYBEAN OIL
     Route: 065
     Dates: start: 20170210
  126. INTRALIPOS [Concomitant]
     Active Substance: SOYBEAN OIL
     Route: 065
     Dates: start: 20170222
  127. INTRALIPOS [Concomitant]
     Active Substance: SOYBEAN OIL
     Route: 065
     Dates: start: 20170224
  128. FULCALIQ [Concomitant]
     Active Substance: AMINO ACIDS\CARBOHYDRATES\ELECTROLYTES NOS\VITAMINS
     Indication: PRODUCT USED FOR UNKNOWN INDICATION
     Route: 065
     Dates: start: 20160831, end: 20160907
  129. FULCALIQ [Concomitant]
     Active Substance: AMINO ACIDS\CARBOHYDRATES\ELECTROLYTES NOS\VITAMINS
     Route: 065
     Dates: start: 20170124, end: 20170130
  130. SEISHOKU [Concomitant]
     Active Substance: SODIUM CHLORIDE
     Route: 065
     Dates: start: 20161004, end: 20161008
  131. SEISHOKU [Concomitant]
     Active Substance: SODIUM CHLORIDE
     Route: 065
     Dates: start: 20161219, end: 20161226
  132. SEISHOKU [Concomitant]
     Active Substance: SODIUM CHLORIDE
     Route: 065
     Dates: start: 20161227, end: 20170102
  133. SEISHOKU [Concomitant]
     Active Substance: SODIUM CHLORIDE
     Route: 065
     Dates: start: 20170116
  134. SEISHOKU [Concomitant]
     Active Substance: SODIUM CHLORIDE
     Route: 065
     Dates: start: 20170207, end: 20170213
  135. CHOREAZINE TABLETS 12.5MG [Suspect]
     Active Substance: TETRABENAZINE
     Route: 048
     Dates: start: 20130621, end: 20130704
  136. UNASYN [Concomitant]
     Active Substance: AMPICILLIN SODIUM\SULBACTAM SODIUM
     Indication: PRODUCT USED FOR UNKNOWN INDICATION
     Route: 065
     Dates: start: 20140927, end: 20141005
  137. EXCEGRAN [Concomitant]
     Active Substance: ZONISAMIDE
     Indication: PRODUCT USED FOR UNKNOWN INDICATION
     Route: 050
     Dates: start: 20141113
  138. PRIMPERAN [Concomitant]
     Active Substance: METOCLOPRAMIDE HYDROCHLORIDE
     Indication: PRODUCT USED FOR UNKNOWN INDICATION
     Route: 050
     Dates: start: 20141113
  139. HIRNAMIN [Concomitant]
     Active Substance: LEVOMEPROMAZINE
     Indication: PRODUCT USED FOR UNKNOWN INDICATION
     Route: 050
     Dates: start: 20141202, end: 20150413
  140. HIRNAMIN [Concomitant]
     Active Substance: LEVOMEPROMAZINE
     Route: 050
     Dates: start: 20141117, end: 20150422
  141. HORIZON [Concomitant]
     Active Substance: DIAZEPAM
     Indication: PRODUCT USED FOR UNKNOWN INDICATION
     Route: 065
     Dates: start: 20160729
  142. HORIZON [Concomitant]
     Active Substance: DIAZEPAM
     Route: 065
     Dates: start: 20170220
  143. LACTEC?G [Concomitant]
     Route: 065
     Dates: start: 20170216
  144. PHYSIO 35 [Concomitant]
     Active Substance: ELECTROLYTES NOS
     Indication: PRODUCT USED FOR UNKNOWN INDICATION
     Route: 065
     Dates: start: 20160802
  145. PHYSIO 35 [Concomitant]
     Active Substance: ELECTROLYTES NOS
     Route: 065
     Dates: start: 201608, end: 20160819
  146. PHYSIO 35 [Concomitant]
     Active Substance: ELECTROLYTES NOS
     Route: 065
     Dates: start: 20170217, end: 20170220
  147. PLEVITA [Concomitant]
     Route: 065
     Dates: start: 20160908, end: 20160912
  148. PENLEIV [Concomitant]
     Route: 065
     Dates: start: 20161122, end: 20161128
  149. PENLEIV [Concomitant]
     Route: 065
     Dates: start: 20170221, end: 20170227
  150. FULCALIQ [Concomitant]
     Active Substance: AMINO ACIDS\CARBOHYDRATES\ELECTROLYTES NOS\VITAMINS
     Route: 065
     Dates: start: 20161018, end: 20161024
  151. FULCALIQ [Concomitant]
     Active Substance: AMINO ACIDS\CARBOHYDRATES\ELECTROLYTES NOS\VITAMINS
     Route: 065
     Dates: start: 20161115, end: 20161121
  152. MEDLENIK [Concomitant]
     Active Substance: CUPRIC SULFATE\FERRIC CHLORIDE\MANGANESE CHLORIDE\POTASSIUM IODIDE\ZINC SULFATE
     Route: 065
     Dates: start: 20161206, end: 20161212
  153. MEDLENIK [Concomitant]
     Active Substance: CUPRIC SULFATE\FERRIC CHLORIDE\MANGANESE CHLORIDE\POTASSIUM IODIDE\ZINC SULFATE
     Route: 065
     Dates: start: 20170124, end: 20170130
  154. INTRALIPOS [Concomitant]
     Active Substance: SOYBEAN OIL
     Indication: NUTRITIONAL SUPPLEMENTATION
     Route: 065
     Dates: start: 20160825
  155. INTRALIPOS [Concomitant]
     Active Substance: SOYBEAN OIL
     Route: 065
     Dates: start: 20160907
  156. INTRALIPOS [Concomitant]
     Active Substance: SOYBEAN OIL
     Route: 065
     Dates: start: 20160914
  157. INTRALIPOS [Concomitant]
     Active Substance: SOYBEAN OIL
     Route: 065
     Dates: start: 20161026
  158. INTRALIPOS [Concomitant]
     Active Substance: SOYBEAN OIL
     Route: 065
     Dates: start: 20161121
  159. INTRALIPOS [Concomitant]
     Active Substance: SOYBEAN OIL
     Route: 065
     Dates: start: 20161128
  160. INTRALIPOS [Concomitant]
     Active Substance: SOYBEAN OIL
     Route: 065
     Dates: start: 20170127
  161. INTRALIPOS [Concomitant]
     Active Substance: SOYBEAN OIL
     Route: 065
     Dates: start: 20170213
  162. INTRALIPOS [Concomitant]
     Active Substance: SOYBEAN OIL
     Route: 065
     Dates: start: 20170215
  163. INTRALIPOS [Concomitant]
     Active Substance: SOYBEAN OIL
     Route: 065
     Dates: start: 20170227
  164. PANTETHINE [Concomitant]
     Active Substance: PANTETHINE
     Route: 065
     Dates: start: 20170110, end: 20170115
  165. PANTETHINE [Concomitant]
     Active Substance: PANTETHINE
     Route: 065
     Dates: start: 20170120, end: 20170123
  166. PANTETHINE [Concomitant]
     Active Substance: PANTETHINE
     Route: 065
     Dates: start: 20170221, end: 20170227
  167. CHOREAZINE TABLETS 12.5MG [Suspect]
     Active Substance: TETRABENAZINE
     Route: 048
     Dates: start: 20130531, end: 20130620
  168. CHOREAZINE TABLETS 12.5MG [Suspect]
     Active Substance: TETRABENAZINE
     Dosage: AFTER DINNER
     Route: 048
     Dates: start: 20160722, end: 20180416
  169. CEFMETAZOLE SODIUM [Suspect]
     Active Substance: CEFMETAZOLE SODIUM
     Route: 065
     Dates: start: 20150616, end: 20150619
  170. CEFMETAZOLE SODIUM [Suspect]
     Active Substance: CEFMETAZOLE SODIUM
     Route: 065
     Dates: start: 20150804, end: 20150813
  171. ARTANE [Concomitant]
     Active Substance: TRIHEXYPHENIDYL HYDROCHLORIDE
     Indication: PRODUCT USED FOR UNKNOWN INDICATION
     Route: 050
     Dates: start: 20141113
  172. PRIMPERAN [Concomitant]
     Active Substance: METOCLOPRAMIDE HYDROCHLORIDE
     Route: 050
     Dates: start: 20161124
  173. HIRNAMIN [Concomitant]
     Active Substance: LEVOMEPROMAZINE
     Dosage: AS NECESSARY
     Route: 050
     Dates: start: 20160704
  174. HORIZON [Concomitant]
     Active Substance: DIAZEPAM
     Route: 065
     Dates: start: 20170105
  175. PHYSIO 35 [Concomitant]
     Active Substance: ELECTROLYTES NOS
     Route: 065
     Dates: start: 20160810, end: 20160811
  176. PHYSIO 35 [Concomitant]
     Active Substance: ELECTROLYTES NOS
     Route: 065
     Dates: start: 20160908, end: 20160912
  177. PHYSIO 35 [Concomitant]
     Active Substance: ELECTROLYTES NOS
     Route: 065
     Dates: start: 20170216
  178. PLEVITA [Concomitant]
     Route: 065
     Dates: start: 20160810, end: 20160811
  179. PLEVITA [Concomitant]
     Route: 065
     Dates: start: 20170216
  180. PENLEIV [Concomitant]
     Indication: PRODUCT USED FOR UNKNOWN INDICATION
     Route: 065
     Dates: start: 20160806, end: 20160809
  181. PENLEIV [Concomitant]
     Route: 065
     Dates: start: 20170116, end: 20170119
  182. FULCALIQ [Concomitant]
     Active Substance: AMINO ACIDS\CARBOHYDRATES\ELECTROLYTES NOS\VITAMINS
     Route: 065
     Dates: start: 20161227, end: 20170102
  183. FULCALIQ [Concomitant]
     Active Substance: AMINO ACIDS\CARBOHYDRATES\ELECTROLYTES NOS\VITAMINS
     Route: 065
     Dates: start: 20170120, end: 20170123
  184. MEDLENIK [Concomitant]
     Active Substance: CUPRIC SULFATE\FERRIC CHLORIDE\MANGANESE CHLORIDE\POTASSIUM IODIDE\ZINC SULFATE
     Route: 065
     Dates: start: 20160913, end: 20160916
  185. MEDLENIK [Concomitant]
     Active Substance: CUPRIC SULFATE\FERRIC CHLORIDE\MANGANESE CHLORIDE\POTASSIUM IODIDE\ZINC SULFATE
     Route: 065
     Dates: start: 20160917, end: 201609
  186. MEDLENIK [Concomitant]
     Active Substance: CUPRIC SULFATE\FERRIC CHLORIDE\MANGANESE CHLORIDE\POTASSIUM IODIDE\ZINC SULFATE
     Route: 065
     Dates: start: 20161101, end: 20161107
  187. MEDLENIK [Concomitant]
     Active Substance: CUPRIC SULFATE\FERRIC CHLORIDE\MANGANESE CHLORIDE\POTASSIUM IODIDE\ZINC SULFATE
     Route: 065
     Dates: start: 20161122, end: 20161128
  188. INTRALIPOS [Concomitant]
     Active Substance: SOYBEAN OIL
     Route: 065
     Dates: start: 20160919
  189. INTRALIPOS [Concomitant]
     Active Substance: SOYBEAN OIL
     Route: 065
     Dates: start: 20160923
  190. INTRALIPOS [Concomitant]
     Active Substance: SOYBEAN OIL
     Route: 065
     Dates: start: 20161003
  191. INTRALIPOS [Concomitant]
     Active Substance: SOYBEAN OIL
     Route: 065
     Dates: start: 20161019
  192. INTRALIPOS [Concomitant]
     Active Substance: SOYBEAN OIL
     Route: 065
     Dates: start: 20161021
  193. INTRALIPOS [Concomitant]
     Active Substance: SOYBEAN OIL
     Route: 065
     Dates: start: 20161104
  194. INTRALIPOS [Concomitant]
     Active Substance: SOYBEAN OIL
     Route: 065
     Dates: start: 20161118
  195. INTRALIPOS [Concomitant]
     Active Substance: SOYBEAN OIL
     Route: 065
     Dates: start: 20161209
  196. INTRALIPOS [Concomitant]
     Active Substance: SOYBEAN OIL
     Route: 065
     Dates: start: 20161214
  197. INTRALIPOS [Concomitant]
     Active Substance: SOYBEAN OIL
     Route: 065
     Dates: start: 20161228
  198. INTRALIPOS [Concomitant]
     Active Substance: SOYBEAN OIL
     Route: 065
     Dates: start: 20170104
  199. FULCALIQ [Concomitant]
     Active Substance: AMINO ACIDS\CARBOHYDRATES\ELECTROLYTES NOS\VITAMINS
     Route: 065
     Dates: start: 20161012, end: 20161017
  200. SEISHOKU [Concomitant]
     Active Substance: SODIUM CHLORIDE
     Route: 065
     Dates: start: 20170221
  201. PANTETHINE [Concomitant]
     Active Substance: PANTETHINE
     Indication: PRODUCT USED FOR UNKNOWN INDICATION
     Route: 065
     Dates: start: 20161207, end: 20161218
  202. PANTETHINE [Concomitant]
     Active Substance: PANTETHINE
     Route: 065
     Dates: start: 20161219, end: 20161226
  203. PANTETHINE [Concomitant]
     Active Substance: PANTETHINE
     Route: 065
     Dates: start: 20170131, end: 20170206
  204. CEFMETAZOLE SODIUM [Suspect]
     Active Substance: CEFMETAZOLE SODIUM
     Indication: URINARY TRACT INFECTION
     Route: 065
     Dates: start: 20150517, end: 20150517
  205. RIVOTRIL [Concomitant]
     Active Substance: CLONAZEPAM
     Route: 050
     Dates: start: 20141119
  206. PHYSIO 35 [Concomitant]
     Active Substance: ELECTROLYTES NOS
     Route: 065
     Dates: start: 20170110, end: 20170115
  207. PENLEIV [Concomitant]
     Route: 065
     Dates: start: 20161012, end: 20161017
  208. PENLEIV [Concomitant]
     Route: 065
     Dates: start: 20170207, end: 20170213
  209. FULCALIQ [Concomitant]
     Active Substance: AMINO ACIDS\CARBOHYDRATES\ELECTROLYTES NOS\VITAMINS
     Route: 065
     Dates: start: 20160913, end: 20160916
  210. FULCALIQ [Concomitant]
     Active Substance: AMINO ACIDS\CARBOHYDRATES\ELECTROLYTES NOS\VITAMINS
     Route: 065
     Dates: start: 20160917, end: 201609
  211. FULCALIQ [Concomitant]
     Active Substance: AMINO ACIDS\CARBOHYDRATES\ELECTROLYTES NOS\VITAMINS
     Route: 065
     Dates: start: 20170131, end: 20170206
  212. MEDLENIK [Concomitant]
     Active Substance: CUPRIC SULFATE\FERRIC CHLORIDE\MANGANESE CHLORIDE\POTASSIUM IODIDE\ZINC SULFATE
     Route: 065
     Dates: start: 20161227, end: 20170102
  213. INTRALIPOS [Concomitant]
     Active Substance: SOYBEAN OIL
     Route: 065
     Dates: start: 20160829
  214. INTRALIPOS [Concomitant]
     Active Substance: SOYBEAN OIL
     Route: 065
     Dates: start: 20160930
  215. INTRALIPOS [Concomitant]
     Active Substance: SOYBEAN OIL
     Route: 065
     Dates: start: 20161017
  216. INTRALIPOS [Concomitant]
     Active Substance: SOYBEAN OIL
     Route: 065
     Dates: start: 20161111
  217. INTRALIPOS [Concomitant]
     Active Substance: SOYBEAN OIL
     Route: 065
     Dates: start: 20161123
  218. INTRALIPOS [Concomitant]
     Active Substance: SOYBEAN OIL
     Route: 065
     Dates: start: 20161216
  219. INTRALIPOS [Concomitant]
     Active Substance: SOYBEAN OIL
     Route: 065
     Dates: start: 20170130
  220. INTRALIPOS [Concomitant]
     Active Substance: SOYBEAN OIL
     Route: 065
     Dates: start: 20170203
  221. INTRALIPOS [Concomitant]
     Active Substance: SOYBEAN OIL
     Route: 065
     Dates: start: 20170206
  222. FULCALIQ [Concomitant]
     Active Substance: AMINO ACIDS\CARBOHYDRATES\ELECTROLYTES NOS\VITAMINS
     Route: 065
     Dates: start: 20161025, end: 20161031
  223. FULCALIQ [Concomitant]
     Active Substance: AMINO ACIDS\CARBOHYDRATES\ELECTROLYTES NOS\VITAMINS
     Route: 065
     Dates: start: 20161220, end: 20161226
  224. SEISHOKU [Concomitant]
     Active Substance: SODIUM CHLORIDE
     Route: 065
     Dates: start: 20170124, end: 20170130
  225. SEISHOKU [Concomitant]
     Active Substance: SODIUM CHLORIDE
     Route: 065
     Dates: start: 20170131, end: 20170206
  226. SEISHOKU [Concomitant]
     Active Substance: SODIUM CHLORIDE
     Route: 065
     Dates: start: 20170217, end: 20170220
  227. PANTETHINE [Concomitant]
     Active Substance: PANTETHINE
     Route: 065
     Dates: start: 20170207, end: 20170213
  228. PANTETHINE [Concomitant]
     Active Substance: PANTETHINE
     Route: 065
     Dates: start: 20170214, end: 20170216
  229. CHOREAZINE TABLETS 12.5MG [Suspect]
     Active Substance: TETRABENAZINE
     Route: 048
     Dates: start: 20130718, end: 20130801
  230. TOLEDOMIN [Concomitant]
     Active Substance: MILNACIPRAN HYDROCHLORIDE
     Indication: DEPRESSION
     Route: 050
     Dates: start: 20141119
  231. HIRNAMIN [Concomitant]
     Active Substance: LEVOMEPROMAZINE
     Dosage: DOSE INCREASED
     Route: 050
     Dates: start: 20140414
  232. HIRNAMIN [Concomitant]
     Active Substance: LEVOMEPROMAZINE
     Dosage: AS NECESSARY
     Route: 050
     Dates: start: 20160617
  233. SHINLUCK [Concomitant]
     Active Substance: SODIUM PICOSULFATE
     Indication: PRODUCT USED FOR UNKNOWN INDICATION
     Route: 050
     Dates: start: 20141121, end: 20151227
  234. HORIZON [Concomitant]
     Active Substance: DIAZEPAM
     Route: 065
     Dates: start: 20170116
  235. HORIZON [Concomitant]
     Active Substance: DIAZEPAM
     Route: 065
     Dates: start: 20170221
  236. PHYSIO 35 [Concomitant]
     Active Substance: ELECTROLYTES NOS
     Route: 065
     Dates: start: 20160806, end: 20160809
  237. PLEVITA [Concomitant]
     Route: 065
     Dates: start: 20170110, end: 20170115
  238. PLEVITA [Concomitant]
     Route: 065
     Dates: start: 20170217, end: 20170220
  239. PENLEIV [Concomitant]
     Route: 065
     Dates: start: 20170217, end: 20170220
  240. FULCALIQ [Concomitant]
     Active Substance: AMINO ACIDS\CARBOHYDRATES\ELECTROLYTES NOS\VITAMINS
     Route: 065
     Dates: start: 20161213, end: 20161219
  241. MEDLENIK [Concomitant]
     Active Substance: CUPRIC SULFATE\FERRIC CHLORIDE\MANGANESE CHLORIDE\POTASSIUM IODIDE\ZINC SULFATE
     Route: 065
     Dates: start: 20161115, end: 20161121
  242. INTRALIPOS [Concomitant]
     Active Substance: SOYBEAN OIL
     Route: 065
     Dates: start: 20160912
  243. INTRALIPOS [Concomitant]
     Active Substance: SOYBEAN OIL
     Route: 065
     Dates: start: 20160921
  244. INTRALIPOS [Concomitant]
     Active Substance: SOYBEAN OIL
     Route: 065
     Dates: start: 20161007
  245. INTRALIPOS [Concomitant]
     Active Substance: SOYBEAN OIL
     Route: 065
     Dates: start: 20161012

REACTIONS (33)
  - Multiple organ dysfunction syndrome [Fatal]
  - Respiratory tract infection [Recovering/Resolving]
  - Urinary tract infection [Not Recovered/Not Resolved]
  - Urinary tract infection [Unknown]
  - Urinary tract infection [Fatal]
  - Pleural effusion [Recovering/Resolving]
  - Alanine aminotransferase increased [Recovered/Resolved]
  - Influenza [Not Recovered/Not Resolved]
  - Urinary tract infection [Recovering/Resolving]
  - Insomnia [Unknown]
  - Dyskinesia [Unknown]
  - Respiratory tract infection [Not Recovered/Not Resolved]
  - Urinary tract infection [Not Recovered/Not Resolved]
  - Septic shock [Fatal]
  - Respiratory tract infection [Recovering/Resolving]
  - Respiratory tract infection [Recovering/Resolving]
  - Abdominal distension [Not Recovered/Not Resolved]
  - Gastrointestinal stoma complication [Not Recovered/Not Resolved]
  - Urinary tract infection [Recovered/Resolved]
  - Urinary tract infection [Recovering/Resolving]
  - Urinary tract infection [Recovered/Resolved]
  - Pneumonia aspiration [Recovering/Resolving]
  - Respiratory tract infection [Unknown]
  - Respiratory tract infection [Recovered/Resolved]
  - Urinary tract infection [Unknown]
  - Urinary tract infection [Recovered/Resolved]
  - Urinary tract infection [Recovered/Resolved]
  - Urinary tract infection [Recovering/Resolving]
  - Vomiting [Unknown]
  - Respiratory tract infection [Recovering/Resolving]
  - Respiratory tract infection [Not Recovered/Not Resolved]
  - Respiratory tract infection [Not Recovered/Not Resolved]
  - Urinary tract infection [Recovered/Resolved]

NARRATIVE: CASE EVENT DATE: 20140927
